FAERS Safety Report 7290187 (Version 18)
Quarter: 2014Q1

REPORT INFORMATION
  Report Type: Spontaneous
  Country: US (occurrence: US)
  Receive Date: 20100223
  Receipt Date: 20140322
  Transmission Date: 20141002
  Serious: Yes (Death, Hospitalization, Other)
  Sender: FDA-Public Use
  Company Number: PHEH2010US02625

PATIENT
  Age: 82 Year
  Sex: Male
  Weight: 82 kg

DRUGS (34)
  1. ZOMETA [Suspect]
     Indication: PROSTATE CANCER METASTATIC
     Dosage: 4 MG, QMO
     Route: 042
     Dates: start: 2001
  2. ZOMETA [Suspect]
     Dosage: 4 MG, QMO
     Dates: start: 2006, end: 2007
  3. ZOMETA [Suspect]
     Dates: end: 200704
  4. SPIRIVA ^BOEHRINGER INGELHEIM^ [Suspect]
  5. ADVAIR [Suspect]
  6. FLOMAX ^BOEHRINGER INGELHEIM^ [Concomitant]
  7. MEGESTROL [Concomitant]
  8. MULTIVITAMINS [Concomitant]
  9. CALCIUM [Concomitant]
  10. SENOKOT-S [Concomitant]
  11. METFORMIN HYDROCHLORIDE [Concomitant]
     Dosage: 500 MG, TID
     Route: 048
  12. WARFARIN [Concomitant]
  13. BETA BLOCKING AGENTS [Concomitant]
  14. DIURETICS [Concomitant]
  15. UROXATRAL [Concomitant]
     Dosage: 2 MG, BID
  16. PULMICORT [Concomitant]
     Dosage: 0.25 MG, BID
  17. ASPIRIN [Concomitant]
     Dosage: 81 MG, QD
     Route: 048
  18. METAMUCIL [Concomitant]
     Dosage: 2 DF, QD
  19. LIPITOR [Concomitant]
  20. CARDIZEM [Concomitant]
  21. FOSAMAX [Concomitant]
     Dosage: UNK UKN, WEEKLY
  22. ATACAND [Concomitant]
     Dosage: 16 MG, QD
     Route: 048
  23. ALEVE [Concomitant]
     Dosage: 220 MG, PRN
     Route: 048
  24. ROXICET [Concomitant]
  25. OCUVITE [Concomitant]
     Dosage: 2 DF, BID
     Route: 048
  26. INFLUENZA VACCINE [Concomitant]
     Dates: start: 200609
  27. MUCINEX [Concomitant]
     Dosage: 600 MG, QHS
     Route: 048
  28. ALBUTEROL SULFATE [Concomitant]
     Route: 055
  29. MITOXANTRONE [Concomitant]
  30. CASODEX [Concomitant]
  31. RADIATION [Concomitant]
  32. INSULIN [Concomitant]
  33. LOVENOX [Concomitant]
  34. ATIVAN [Concomitant]

REACTIONS (103)
  - Pain [Unknown]
  - Anxiety [Unknown]
  - Anhedonia [Unknown]
  - Pain in jaw [Unknown]
  - Toothache [Unknown]
  - Breast cancer recurrent [Unknown]
  - Breast mass [Unknown]
  - Metastases to spine [Unknown]
  - Metastases to bone [Unknown]
  - Metastases to liver [Unknown]
  - Metastases to spleen [Unknown]
  - Pleural effusion [Unknown]
  - Hepatic steatosis [Unknown]
  - Carotid artery disease [Unknown]
  - Chronic obstructive pulmonary disease [Unknown]
  - Emphysema [Unknown]
  - Dyspnoea [Unknown]
  - Deafness neurosensory [Unknown]
  - Carpal tunnel syndrome [Unknown]
  - Deep vein thrombosis [Unknown]
  - Oedema peripheral [Unknown]
  - Hypertension [Unknown]
  - Type 2 diabetes mellitus [Unknown]
  - Rheumatoid arthritis [Recovering/Resolving]
  - Gout [Unknown]
  - Macular degeneration [Unknown]
  - Vision blurred [Recovered/Resolved]
  - Adrenal mass [Unknown]
  - Hot flush [Unknown]
  - Neck pain [Unknown]
  - Nocturia [Unknown]
  - Dysuria [Recovered/Resolved]
  - Lymphadenopathy [Unknown]
  - Back pain [Unknown]
  - Haematuria [Recovered/Resolved]
  - Hyperlipidaemia [Unknown]
  - Herpes virus infection [Unknown]
  - Malaise [Unknown]
  - Fatigue [Unknown]
  - Red blood cell count decreased [Unknown]
  - Haemoglobin decreased [Unknown]
  - Haematoma [Unknown]
  - Erythema [Unknown]
  - Squamous cell carcinoma [Unknown]
  - Second primary malignancy [Unknown]
  - Tooth infection [Unknown]
  - Phlebitis [Unknown]
  - Urinary tract infection [Unknown]
  - Bronchitis [Unknown]
  - Cataract [Unknown]
  - Musculoskeletal stiffness [Recovering/Resolving]
  - Oesophagitis [Unknown]
  - Cardiac failure congestive [Unknown]
  - Neutropenia [Unknown]
  - Tooth abscess [Unknown]
  - Thrombophlebitis [Unknown]
  - Benign prostatic hyperplasia [Unknown]
  - Spinal osteoarthritis [Unknown]
  - Laceration [Unknown]
  - Skin ulcer [Unknown]
  - Chest pain [Unknown]
  - Pneumonia [Unknown]
  - Respiratory distress [Unknown]
  - Respiratory rate decreased [Unknown]
  - Skin cancer [Unknown]
  - Urinary retention [Unknown]
  - Periodontal disease [Unknown]
  - Blood urine present [Unknown]
  - Aspiration [Unknown]
  - Osteoarthritis [Unknown]
  - Urethral obstruction [Unknown]
  - Overweight [Unknown]
  - Hyperglycaemia [Unknown]
  - Hyponatraemia [Unknown]
  - Hypokalaemia [Unknown]
  - Mobility decreased [Unknown]
  - Agitation [Unknown]
  - Dysphagia [Unknown]
  - Dizziness [Unknown]
  - Asthenia [Unknown]
  - Intervertebral disc degeneration [Unknown]
  - Oliguria [Unknown]
  - Anuria [Unknown]
  - Impaired healing [Unknown]
  - Glossodynia [Unknown]
  - Cervical radiculopathy [Unknown]
  - Cervical spinal stenosis [Unknown]
  - Vertebral foraminal stenosis [Unknown]
  - Synovitis [Unknown]
  - Urethral stenosis [Unknown]
  - Tachycardia [Unknown]
  - Diverticulum intestinal [Unknown]
  - Bone lesion [Unknown]
  - Nodule [Unknown]
  - Contusion [Unknown]
  - Periodontitis [Unknown]
  - Osteomyelitis [Unknown]
  - Spinal disorder [Unknown]
  - Osteosclerosis [Unknown]
  - Prostate cancer [Fatal]
  - Hypotension [Unknown]
  - Osteonecrosis of jaw [Unknown]
  - Injury [Unknown]
